FAERS Safety Report 25119902 (Version 2)
Quarter: 2025Q2

REPORT INFORMATION
  Report Type: Spontaneous
  Country: RS (occurrence: RS)
  Receive Date: 20250325
  Receipt Date: 20250404
  Transmission Date: 20250717
  Serious: No
  Sender: TOLMAR
  Company Number: RS-RECGATEWAY-2025001680

PATIENT

DRUGS (1)
  1. ELIGARD [Suspect]
     Active Substance: LEUPROLIDE ACETATE
     Indication: Product used for unknown indication
     Dates: start: 202502

REACTIONS (2)
  - Intercepted product preparation error [Unknown]
  - Device leakage [Unknown]

NARRATIVE: CASE EVENT DATE: 20250201
